FAERS Safety Report 4625030-6 (Version None)
Quarter: 2005Q2

REPORT INFORMATION
  Report Type: 
  Country: None (occurrence: None)
  Receive Date: 20050325
  Receipt Date: 20050121
  Transmission Date: 20051028
  Serious: No
  Sender: FDA-Public Use
  Company Number: US_0502112532

PATIENT
  Age: 57 Year
  Sex: Female

DRUGS (2)
  1. FORTEO [Suspect]
     Indication: OSTEOPOROSIS
     Dosage: 20 UG
     Dates: start: 20050113
  2. CALCIUM GLUCONATE [Concomitant]

REACTIONS (3)
  - BACK PAIN [None]
  - HEADACHE [None]
  - NAUSEA [None]
